FAERS Safety Report 19991377 (Version 1)
Quarter: 2021Q4

REPORT INFORMATION
  Report Type: Spontaneous
  Country: US (occurrence: US)
  Receive Date: 20211025
  Receipt Date: 20211025
  Transmission Date: 20220303
  Serious: Yes (Other)
  Sender: FDA-Public Use
  Company Number: US-MYLANLABS-2021M1074174

PATIENT
  Age: 56 Year
  Sex: Male

DRUGS (5)
  1. AMLODIPINE BESYLATE AND VALSARTAN [Suspect]
     Active Substance: AMLODIPINE BESYLATE\VALSARTAN
     Indication: Hypertension
     Dosage: UNK
     Dates: start: 20150619, end: 20150719
  2. AMLODIPINE BESYLATE AND VALSARTAN [Suspect]
     Active Substance: AMLODIPINE BESYLATE\VALSARTAN
     Dosage: UNK
     Dates: start: 20150807, end: 20171128
  3. ALEGRA [Concomitant]
     Indication: Hypersensitivity
     Dosage: 1 DOSAGE FORM, QD, 1 TABLET DAILY AS NEEDED
     Dates: start: 2017, end: 2018
  4. TYLENOL [Concomitant]
     Active Substance: ACETAMINOPHEN
     Dosage: UNK, PRN, AS NEEDED
     Dates: start: 2015, end: 2018
  5. MOMETASONE FUROATE [Concomitant]
     Active Substance: MOMETASONE FUROATE
     Indication: Hypersensitivity
     Dosage: UNK, PRN, AS NEEDED
     Dates: start: 2015, end: 2018

REACTIONS (1)
  - Carcinoid tumour of the small bowel [Unknown]

NARRATIVE: CASE EVENT DATE: 20180207
